FAERS Safety Report 16527573 (Version 1)
Quarter: 2019Q3

REPORT INFORMATION
  Report Type: Spontaneous
  Country: IL (occurrence: IL)
  Receive Date: 20190703
  Receipt Date: 20190703
  Transmission Date: 20191004
  Serious: Yes (Death, Life-Threatening, Hospitalization)
  Sender: FDA-Public Use
  Company Number: IL-CELGENEUS-ISR-20190610078

PATIENT
  Age: 82 Year
  Sex: Female

DRUGS (23)
  1. ZOFRAN [Concomitant]
     Active Substance: ONDANSETRON HYDROCHLORIDE
     Indication: PROPHYLAXIS
     Route: 048
     Dates: start: 20180218
  2. CIPROFLOXACIN. [Concomitant]
     Active Substance: CIPROFLOXACIN
     Indication: CELLULITIS
  3. ALLOPURINOL. [Concomitant]
     Active Substance: ALLOPURINOL
     Indication: PROPHYLAXIS
     Route: 048
     Dates: start: 20180219, end: 20180225
  4. BISACODYL. [Concomitant]
     Active Substance: BISACODYL
     Indication: CONSTIPATION
     Dosage: 10 MILLIGRAM
     Route: 048
     Dates: start: 2017
  5. PARACETAMOL [Concomitant]
     Active Substance: ACETAMINOPHEN
     Indication: ARTHRALGIA
     Route: 048
     Dates: start: 2002
  6. PARACETAMOL [Concomitant]
     Active Substance: ACETAMINOPHEN
     Indication: PROPHYLAXIS
     Route: 048
     Dates: start: 20180218
  7. PARACETAMOL [Concomitant]
     Active Substance: ACETAMINOPHEN
     Indication: MUSCULOSKELETAL PAIN
     Route: 048
     Dates: start: 20190422, end: 20190509
  8. FUROSEMIDE. [Concomitant]
     Active Substance: FUROSEMIDE
     Indication: WHEEZING
     Dosage: 40 MILLIGRAM
     Route: 048
     Dates: start: 20190427
  9. LERCANIDIPINE HYDROCHLORIDE [Concomitant]
     Active Substance: LERCANIDIPINE HYDROCHLORIDE
     Indication: HYPERTENSION
     Route: 048
     Dates: start: 20190425
  10. FOLIC ACID. [Concomitant]
     Active Substance: FOLIC ACID
     Indication: FOLATE DEFICIENCY
     Dosage: 5 MILLIGRAM
     Route: 048
     Dates: start: 20190509
  11. VENETOCLAX. [Concomitant]
     Active Substance: VENETOCLAX
     Indication: ACUTE MYELOID LEUKAEMIA
     Route: 065
  12. CIPRALEX [Concomitant]
     Active Substance: ESCITALOPRAM OXALATE
     Indication: DEPRESSION
     Dosage: 10 MILLIGRAM
     Route: 048
     Dates: start: 20180610
  13. FUROSEMIDE. [Concomitant]
     Active Substance: FUROSEMIDE
     Indication: OEDEMA PERIPHERAL
     Dosage: 40 MILLIGRAM
     Route: 041
     Dates: start: 20180222, end: 20180222
  14. CIPROFLOXACIN. [Concomitant]
     Active Substance: CIPROFLOXACIN
     Indication: SEPSIS
     Dosage: 500 MILLIGRAM
     Route: 041
     Dates: start: 20190414, end: 20190513
  15. CIPROFLOXACIN. [Concomitant]
     Active Substance: CIPROFLOXACIN
     Indication: THROMBOPHLEBITIS
     Dosage: 500 MILLIGRAM
     Route: 048
     Dates: start: 20190503
  16. AZACITIDINE. [Suspect]
     Active Substance: AZACITIDINE
     Indication: ACUTE MYELOID LEUKAEMIA
     Dosage: 75 MILLIGRAM/SQ. METER
     Route: 058
     Dates: start: 20180218
  17. NACL [Concomitant]
     Active Substance: SODIUM CHLORIDE
     Indication: PROPHYLAXIS
     Route: 041
     Dates: start: 20180219, end: 20180219
  18. LORATADINE. [Concomitant]
     Active Substance: LORATADINE
     Indication: PROPHYLAXIS
     Route: 048
     Dates: start: 20180218
  19. FUROSEMIDE. [Concomitant]
     Active Substance: FUROSEMIDE
     Indication: OEDEMA PERIPHERAL
  20. CLINDAMYCIN HYDROCHLORIDE. [Concomitant]
     Active Substance: CLINDAMYCIN HYDROCHLORIDE
     Indication: SEPSIS
     Dosage: 300 MILLIGRAM
     Route: 048
     Dates: start: 20190513
  21. CLINDAMYCIN HYDROCHLORIDE. [Concomitant]
     Active Substance: CLINDAMYCIN HYDROCHLORIDE
     Indication: CELLULITIS
  22. PALOXI [Concomitant]
     Active Substance: PALONOSETRON HYDROCHLORIDE
     Indication: PROPHYLAXIS OF NAUSEA AND VOMITING
     Route: 041
     Dates: start: 20180517
  23. CLINDAMYCIN HYDROCHLORIDE. [Concomitant]
     Active Substance: CLINDAMYCIN HYDROCHLORIDE
     Indication: THROMBOPHLEBITIS

REACTIONS (1)
  - Sepsis [Fatal]

NARRATIVE: CASE EVENT DATE: 20190611
